FAERS Safety Report 23378007 (Version 1)
Quarter: 2024Q1

REPORT INFORMATION
  Report Type: Spontaneous
  Country: US (occurrence: None)
  Receive Date: 20240105
  Receipt Date: 20240105
  Transmission Date: 20240410
  Serious: No
  Sender: FDA-Public Use
  Company Number: None

PATIENT
  Sex: Female

DRUGS (1)
  1. PIQRAY [Suspect]
     Active Substance: ALPELISIB
     Indication: Breast cancer
     Dosage: 300MG ONCE DAILY BY MOUTH?
     Route: 048
     Dates: start: 202312

REACTIONS (2)
  - Rash pruritic [None]
  - Therapy interrupted [None]
